FAERS Safety Report 10922686 (Version 1)
Quarter: 2015Q1

REPORT INFORMATION
  Report Type: Spontaneous
  Country: US (occurrence: None)
  Receive Date: 20150313
  Receipt Date: 20150313
  Transmission Date: 20150721
  Serious: Yes (Other)
  Sender: FDA-Public Use
  Company Number: 2782968

PATIENT
  Age: 55 Year
  Sex: Male

DRUGS (1)
  1. ISOFLURANE. [Suspect]
     Active Substance: ISOFLURANE
     Indication: ANAESTHESIA
     Route: 055

REACTIONS (4)
  - Respiratory acidosis [None]
  - Hypertension [None]
  - Device malfunction [None]
  - Tachycardia [None]
